FAERS Safety Report 7159419-0 (Version None)
Quarter: 2010Q4

REPORT INFORMATION
  Report Type: 
  Country: None (occurrence: None)
  Receive Date: 20101214
  Receipt Date: 20100902
  Transmission Date: 20110411
  Serious: No
  Sender: FDA-Public Use
  Company Number: US-ASTRAZENECA-2010SE41376

PATIENT
  Sex: Female

DRUGS (4)
  1. CRESTOR [Suspect]
     Route: 048
  2. ASPIRIN [Concomitant]
  3. VITAMINS [Concomitant]
  4. CALCIUM [Concomitant]

REACTIONS (4)
  - DRUG DOSE OMISSION [None]
  - MUSCULAR WEAKNESS [None]
  - MYALGIA [None]
  - PYREXIA [None]
